FAERS Safety Report 7569533-3 (Version None)
Quarter: 2011Q2

REPORT INFORMATION
  Report Type: 
  Country: None (occurrence: None)
  Receive Date: 20110624
  Receipt Date: 20110615
  Transmission Date: 20111010
  Serious: No
  Sender: FDA-Public Use
  Company Number: US-BIOGENIDEC-2011BI022428

PATIENT
  Age: 39 Year
  Sex: Female

DRUGS (1)
  1. AVONEX [Suspect]
     Indication: MULTIPLE SCLEROSIS
     Route: 030
     Dates: start: 20110511

REACTIONS (4)
  - PAIN IN EXTREMITY [None]
  - INFLUENZA LIKE ILLNESS [None]
  - HYPERAESTHESIA [None]
  - WHITE BLOOD CELL COUNT DECREASED [None]
